FAERS Safety Report 19213358 (Version 1)
Quarter: 2021Q2

REPORT INFORMATION
  Report Type: Spontaneous
  Country: US (occurrence: US)
  Receive Date: 20210504
  Receipt Date: 20210504
  Transmission Date: 20210717
  Serious: No
  Sender: FDA-Public Use
  Company Number: US-IPSEN BIOPHARMACEUTICALS, INC.-2021-10777

PATIENT
  Age: 49 Year
  Sex: Female

DRUGS (2)
  1. PFIZER?BIONTECH COVID?19 VACCINE [Suspect]
     Active Substance: TOZINAMERAN
     Indication: PRODUCT USED FOR UNKNOWN INDICATION
  2. SOMATULINE DEPOT [Suspect]
     Active Substance: LANREOTIDE ACETATE
     Indication: GASTROENTEROPANCREATIC NEUROENDOCRINE TUMOUR DISEASE
     Route: 058
     Dates: start: 202103

REACTIONS (3)
  - Pain in extremity [Recovered/Resolved]
  - Injection site mass [Not Recovered/Not Resolved]
  - Flushing [Recovered/Resolved]

NARRATIVE: CASE EVENT DATE: 2021
